FAERS Safety Report 8619957-8 (Version None)
Quarter: 2012Q3

REPORT INFORMATION
  Report Type: 
  Country: None (occurrence: None)
  Receive Date: 20120817
  Receipt Date: 20120817
  Transmission Date: 20120928
  Serious: Yes (Hospitalization, Other)
  Sender: FDA-Public Use
  Company Number: None

PATIENT
  Age: 15 Year
  Sex: Male
  Weight: 71.8 kg

DRUGS (5)
  1. ALBUTEROL [Concomitant]
     Dates: start: 20120805, end: 20120809
  2. CLEOCIN PHOSPHATE [Suspect]
     Indication: INFECTION
     Dosage: 600 MG, Q8H, IV
     Route: 042
     Dates: start: 20120805, end: 20120806
  3. VANCOMYCIN 1 DOSE IV [Concomitant]
     Route: 042
     Dates: start: 20120805
  4. CEFTRIAXONE [Concomitant]
     Route: 042
     Dates: start: 20120805, end: 20120808
  5. ACETAMINOPHEN PO [Concomitant]
     Route: 048
     Dates: start: 20120805

REACTIONS (3)
  - URTICARIA [None]
  - EYE SWELLING [None]
  - RASH ERYTHEMATOUS [None]
